FAERS Safety Report 11501667 (Version 1)
Quarter: 2015Q3

REPORT INFORMATION
  Report Type: Spontaneous
  Country: IT (occurrence: IT)
  Receive Date: 20150914
  Receipt Date: 20150914
  Transmission Date: 20151125
  Serious: Yes (Hospitalization)
  Sender: FDA-Public Use
  Company Number: IT-GLAXOSMITHKLINE-IT2014GSK032015

PATIENT
  Age: 9 Year
  Sex: Male

DRUGS (2)
  1. NUROFEN [Suspect]
     Active Substance: IBUPROFEN
     Indication: PYREXIA
     Dosage: 30 ML, QD
     Dates: start: 20141108, end: 20141113
  2. ACICLOVIR [Suspect]
     Active Substance: ACYCLOVIR
     Indication: ORAL HERPES
     Dosage: 30 ML, QD
     Dates: start: 20141108, end: 20141115

REACTIONS (1)
  - Erythema multiforme [Recovered/Resolved]

NARRATIVE: CASE EVENT DATE: 20141116
